FAERS Safety Report 11304903 (Version 1)
Quarter: 2015Q3

REPORT INFORMATION
  Report Type: Spontaneous
  Country: US (occurrence: US)
  Receive Date: 20150723
  Receipt Date: 20150723
  Transmission Date: 20151125
  Serious: No
  Sender: FDA-Public Use
  Company Number: US-JNJFOC-20150400768

PATIENT
  Age: 71 Year
  Sex: Female
  Weight: 52.62 kg

DRUGS (13)
  1. ACETYLSALICYLIC ACID [Concomitant]
     Active Substance: ASPIRIN
     Indication: CARDIAC DISORDER
     Route: 065
  2. SYNTHROID [Concomitant]
     Active Substance: LEVOTHYROXINE SODIUM
     Indication: THYROID DISORDER
     Route: 065
  3. ZANTAC [Concomitant]
     Active Substance: RANITIDINE HYDROCHLORIDE
     Indication: DYSPEPSIA
     Dosage: DAILY
     Route: 065
  4. ZYRTEC [Suspect]
     Active Substance: CETIRIZINE HYDROCHLORIDE
     Route: 048
  5. GLUCOPHAGE [Concomitant]
     Active Substance: METFORMIN HYDROCHLORIDE
     Indication: DIABETES MELLITUS
     Route: 065
  6. CLONAZEPAM. [Concomitant]
     Active Substance: CLONAZEPAM
     Indication: SLEEP DISORDER THERAPY
     Route: 065
  7. LIDOCAINE PATCHES [Concomitant]
     Indication: PAIN
     Route: 065
  8. VITAMIN B3 [Concomitant]
     Active Substance: NIACIN
     Indication: NUTRITIONAL SUPPLEMENTATION
     Dosage: DAILY
     Route: 065
  9. ZYRTEC [Suspect]
     Active Substance: CETIRIZINE HYDROCHLORIDE
     Indication: MULTIPLE ALLERGIES
     Route: 048
     Dates: end: 20150325
  10. FERROUS SULFATE [Concomitant]
     Active Substance: FERROUS SULFATE\FERROUS SULFATE, DRIED
     Indication: NUTRITIONAL SUPPLEMENTATION
     Route: 065
  11. MULTIVITAMINS [Concomitant]
     Active Substance: VITAMINS
     Indication: NUTRITIONAL SUPPLEMENTATION
     Dosage: DAILY
     Route: 065
  12. ALOE [Concomitant]
     Active Substance: ALOE
     Indication: NUTRITIONAL SUPPLEMENTATION
     Dosage: DAILY
     Route: 065
  13. ACTONEL [Concomitant]
     Active Substance: RISEDRONATE SODIUM
     Indication: OSTEOPOROSIS
     Route: 065

REACTIONS (2)
  - Somnolence [Recovered/Resolved]
  - Product use issue [Unknown]
